FAERS Safety Report 25360006 (Version 1)
Quarter: 2025Q2

REPORT INFORMATION
  Report Type: Spontaneous
  Country: CN (occurrence: CN)
  Receive Date: 20250526
  Receipt Date: 20250526
  Transmission Date: 20250716
  Serious: Yes (Other)
  Sender: ABBVIE
  Company Number: CN-PFIZER INC-PV202500059232

PATIENT
  Age: 55 Year
  Sex: Male

DRUGS (2)
  1. AVIBACTAM [Suspect]
     Active Substance: AVIBACTAM
     Indication: Mediastinal abscess
     Dosage: 0.94 G, Q12H?LAST ADMIN MAR 2025
     Route: 041
     Dates: start: 20250305
  2. AVIBACTAM [Suspect]
     Active Substance: AVIBACTAM
     Indication: Mediastinal abscess
     Route: 041
     Dates: start: 20250313

REACTIONS (13)
  - Tracheal fistula [Unknown]
  - Off label use [Unknown]
  - Urine output decreased [Unknown]
  - Tuberculous pleurisy [Unknown]
  - Pyrexia [Unknown]
  - Full blood count decreased [Unknown]
  - Blood pressure decreased [Unknown]
  - Respiratory disorder [Unknown]
  - Cardiovascular disorder [Unknown]
  - Condition aggravated [Unknown]
  - Hepatic enzyme increased [Unknown]
  - Blood bilirubin increased [Unknown]
  - Infection [Unknown]

NARRATIVE: CASE EVENT DATE: 20250314
